FAERS Safety Report 9496397 (Version 1)
Quarter: 2013Q3

REPORT INFORMATION
  Report Type: Spontaneous
  Country: US (occurrence: None)
  Receive Date: 20130829
  Receipt Date: 20130829
  Transmission Date: 20140515
  Serious: Yes (Death, Hospitalization)
  Sender: FDA-Public Use
  Company Number: SYM-2013-09819

PATIENT
  Age: 89 Year
  Sex: Female

DRUGS (1)
  1. XENAZINE (TETRABENAZINE) (TETRABENAZINE) [Suspect]
     Indication: DYSKINESIA
     Route: 048
     Dates: start: 20100603, end: 20130722

REACTIONS (1)
  - Cerebral haemorrhage [None]
